FAERS Safety Report 25714631 (Version 1)
Quarter: 2025Q3

REPORT INFORMATION
  Report Type: Spontaneous
  Country: JP (occurrence: JP)
  Receive Date: 20250822
  Receipt Date: 20250822
  Transmission Date: 20251020
  Serious: Yes (Hospitalization)
  Sender: ACCORD
  Company Number: JP-Accord-500282

PATIENT
  Age: 3 Year
  Sex: Male
  Weight: 15.4 kg

DRUGS (3)
  1. MYCOPHENOLATE MOFETIL [Suspect]
     Active Substance: MYCOPHENOLATE MOFETIL
     Indication: Immunosuppressant drug therapy
     Dosage: (1176 MG/M2/DAY)
  2. PREDNISOLONE [Concomitant]
     Active Substance: PREDNISOLONE
     Indication: Immunosuppressant drug therapy
     Dosage: (2 MG/KG/DAY), THEN THE PSL DOSE WAS TAPERED
  3. PREDNISOLONE [Concomitant]
     Active Substance: PREDNISOLONE
     Indication: Immunosuppressant drug therapy
     Dosage: (1.3 MG/KG/DAY)

REACTIONS (2)
  - Viruria [Recovered/Resolved]
  - BK virus infection [Recovered/Resolved]
